FAERS Safety Report 8515982-6 (Version None)
Quarter: 2012Q3

REPORT INFORMATION
  Report Type: 
  Country: None (occurrence: None)
  Receive Date: 20120717
  Receipt Date: 20120713
  Transmission Date: 20120928
  Serious: No
  Sender: FDA-Public Use
  Company Number: US-PFIZER INC-2012127332

PATIENT
  Sex: Female
  Weight: 79 kg

DRUGS (2)
  1. ATORVASTATIN CALCIUM [Suspect]
     Indication: BLOOD CHOLESTEROL INCREASED
     Dosage: 40 MG, DAILY
     Dates: start: 20111228, end: 20120101
  2. DIOVAN HCT [Concomitant]
     Indication: HYPERTENSION
     Dosage: 160/12.5 MG, QD
     Route: 048
     Dates: start: 20080501

REACTIONS (1)
  - FLATULENCE [None]
